FAERS Safety Report 20493096 (Version 4)
Quarter: 2022Q2

REPORT INFORMATION
  Report Type: Spontaneous
  Country: JP (occurrence: None)
  Receive Date: 20220220
  Receipt Date: 20220429
  Transmission Date: 20220720
  Serious: Yes (Other)
  Sender: FDA-Public Use
  Company Number: 2022A070861

PATIENT
  Age: 22449 Day
  Sex: Female
  Weight: 48 kg

DRUGS (14)
  1. FASLODEX [Suspect]
     Active Substance: FULVESTRANT
     Indication: Breast cancer female
     Dosage: DOSE UNKNOWN
     Route: 030
     Dates: start: 20210217
  2. FASLODEX [Suspect]
     Active Substance: FULVESTRANT
     Indication: Breast cancer female
     Dosage: DOSE UNKNOWN
     Route: 030
  3. IBRANCE [Suspect]
     Active Substance: PALBOCICLIB
     Indication: Breast cancer female
     Route: 048
     Dates: start: 20200606, end: 20210223
  4. FASLODEX [Suspect]
     Active Substance: FULVESTRANT
     Indication: Breast cancer female
     Dosage: DOSE UNKNOWN
     Route: 030
     Dates: start: 20210217
  5. FASLODEX [Suspect]
     Active Substance: FULVESTRANT
     Indication: Breast cancer female
     Dosage: DOSE UNKNOWN
     Route: 030
  6. VERZENIO [Suspect]
     Active Substance: ABEMACICLIB
     Indication: Breast cancer female
     Dosage: DOSE UNKNOWN
     Route: 065
     Dates: start: 20200117, end: 20200605
  7. VERZENIO [Suspect]
     Active Substance: ABEMACICLIB
     Indication: Breast cancer female
     Route: 048
     Dates: start: 20210303, end: 20210316
  8. VERZENIO [Suspect]
     Active Substance: ABEMACICLIB
     Indication: Breast cancer female
     Dosage: DOSE UNKNOWN
     Route: 048
     Dates: start: 20210317, end: 20220127
  9. ZOMETA [Suspect]
     Active Substance: ZOLEDRONIC ACID
     Indication: Breast cancer female
     Dosage: 4 / WEEK
     Route: 041
     Dates: start: 20190627, end: 20190816
  10. ZOMETA [Suspect]
     Active Substance: ZOLEDRONIC ACID
     Indication: Breast cancer female
     Dosage: 4 / WEEK
     Route: 041
     Dates: start: 20190905, end: 20191220
  11. ZOMETA [Suspect]
     Active Substance: ZOLEDRONIC ACID
     Indication: Breast cancer female
     Dosage: 4 / WEEK
     Route: 041
     Dates: start: 20200117
  12. ZOMETA [Suspect]
     Active Substance: ZOLEDRONIC ACID
     Indication: Breast cancer female
     Dosage: 12 / WEEK
     Route: 041
     Dates: start: 20200606
  13. ZOLEDRONIC ACID [Concomitant]
     Active Substance: ZOLEDRONIC ACID
     Indication: Breast cancer female
     Route: 065
     Dates: start: 20210217
  14. EXEMESTANE [Concomitant]
     Active Substance: EXEMESTANE
     Indication: Breast cancer female
     Dosage: DOSE UNKNOWN
     Route: 065
     Dates: start: 2022

REACTIONS (4)
  - Interstitial lung disease [Recovering/Resolving]
  - Pyrexia [Unknown]
  - SARS-CoV-2 test negative [Unknown]
  - Diarrhoea [Unknown]

NARRATIVE: CASE EVENT DATE: 20210317
